FAERS Safety Report 5016461-3 (Version None)
Quarter: 2006Q2

REPORT INFORMATION
  Report Type: 
  Country: None (occurrence: None)
  Receive Date: 20060602
  Receipt Date: 20060529
  Transmission Date: 20061013
  Serious: Yes (Hospitalization)
  Sender: FDA-Public Use
  Company Number: FR-AVENTIS-200611927FR

PATIENT
  Age: 49 Year
  Sex: Female

DRUGS (3)
  1. TAXOTERE [Suspect]
     Indication: BREAST CANCER METASTATIC
     Route: 042
     Dates: start: 20060324, end: 20060324
  2. GEMZAR [Suspect]
     Indication: BREAST CANCER METASTATIC
     Route: 042
     Dates: start: 20060317, end: 20060317
  3. GRANOCYTE [Concomitant]
     Dates: start: 20060325, end: 20060327

REACTIONS (6)
  - DERMATITIS BULLOUS [None]
  - ERYTHEMA [None]
  - EYE DISORDER [None]
  - GENITAL ULCERATION [None]
  - OEDEMA PERIPHERAL [None]
  - STOMATITIS [None]
